FAERS Safety Report 17017869 (Version 2)
Quarter: 2019Q4

REPORT INFORMATION
  Report Type: Report from Study
  Country: IT (occurrence: IT)
  Receive Date: 20191111
  Receipt Date: 20191120
  Transmission Date: 20200122
  Serious: Yes (Hospitalization)
  Sender: FDA-Public Use
  Company Number: IT-MYLANLABS-2019M1106631

PATIENT
  Age: 51 Year
  Sex: Female
  Weight: 55 kg

DRUGS (4)
  1. TRASTUZUMAB. [Suspect]
     Active Substance: TRASTUZUMAB
     Indication: BREAST CANCER
     Dosage: 8 MILLIGRAM/KILOGRAM, 3XW (MOST RECENT DOSE PRIOR TO THE EVENT WAS 13/FEB/2017)
     Route: 042
     Dates: start: 20170119
  2. DOCETAXEL. [Suspect]
     Active Substance: DOCETAXEL
     Dosage: DOSE REDUCED
     Route: 042
  3. DOCETAXEL. [Suspect]
     Active Substance: DOCETAXEL
     Indication: BREAST CANCER
     Dosage: 116 MILLIGRAM, 3XW (MOST RECENT DOSE RECEIVED ON 27/MAR/2017,18/APR/2017)
     Route: 042
     Dates: start: 20170119
  4. PERTUZUMAB. [Suspect]
     Active Substance: PERTUZUMAB
     Indication: BREAST CANCER
     Dosage: 840 MILLIGRAM, 3XW (MOST RECENT DOSE PRIOR TO EVENT:13/FEB/2017)
     Route: 042
     Dates: start: 20170119

REACTIONS (2)
  - Paraesthesia [Recovered/Resolved]
  - Presyncope [Recovered/Resolved]

NARRATIVE: CASE EVENT DATE: 20170418
